FAERS Safety Report 5766938-8 (Version None)
Quarter: 2008Q2

REPORT INFORMATION
  Report Type: 
  Country: None (occurrence: None)
  Receive Date: 20080519
  Receipt Date: 20070425
  Transmission Date: 20081010
  Serious: No
  Sender: FDA-Public Use
  Company Number: 2007BH003911

PATIENT
  Age: 43 Year
  Sex: Female
  Weight: 54.4316 kg

DRUGS (2)
  1. HEPARIN SODIUM [Suspect]
     Indication: THROMBOSIS PROPHYLAXIS
     Dosage: .8 UNITS; 2X A DAY; SC
     Route: 058
     Dates: start: 20070423, end: 20070425
  2. VITAMIN TAB [Concomitant]

REACTIONS (1)
  - URTICARIA [None]
